FAERS Safety Report 6153489-4 (Version None)
Quarter: 2009Q2

REPORT INFORMATION
  Report Type: 
  Country: None (occurrence: None)
  Receive Date: 20090413
  Receipt Date: 20081106
  Transmission Date: 20091009
  Serious: No
  Sender: FDA-Public Use
  Company Number: US-ABBOTT-08P-163-0487079-00

PATIENT
  Sex: Male

DRUGS (2)
  1. LUPRON [Suspect]
     Indication: PROSTATE CANCER
     Dosage: 1 MONTH DOSE
     Route: 058
  2. ELIGARD [Suspect]
     Indication: PROSTATE CANCER
     Route: 058

REACTIONS (1)
  - HEADACHE [None]
